FAERS Safety Report 19987971 (Version 1)
Quarter: 2021Q4

REPORT INFORMATION
  Report Type: Other
  Country: BG (occurrence: BG)
  Receive Date: 20211022
  Receipt Date: 20211022
  Transmission Date: 20220303
  Serious: Yes (Other)
  Sender: FDA-Public Use
  Company Number: BG-INVATECH-000147

PATIENT
  Age: 34 Year
  Sex: Female

DRUGS (7)
  1. PYRIDOSTIGMINE [Suspect]
     Active Substance: PYRIDOSTIGMINE
     Indication: Myasthenia gravis
     Dosage: 3 X 200MG/24H
  2. AZATHIOPRINE [Suspect]
     Active Substance: AZATHIOPRINE
     Indication: Myasthenia gravis
     Dosage: 150 MG/ 24H
  3. AZITHROMYCIN ANHYDROUS [Concomitant]
     Active Substance: AZITHROMYCIN ANHYDROUS
     Indication: COVID-19
     Dosage: 500 MG/24H FOR 7 DAYS
  4. NADROPARIN [Concomitant]
     Active Substance: NADROPARIN
     Indication: COVID-19
     Dosage: 0.3 ML. EVERY 2 DAYS FOR 20 DAY
  5. VITAMIN C [Concomitant]
     Active Substance: ASCORBIC ACID
     Indication: COVID-19
     Dosage: 1000 MG/24H FOR 20 DAYS
  6. VITAMIN D [Concomitant]
     Active Substance: VITAMIN D NOS
     Indication: COVID-19
     Dosage: 10,000 IU FOR 20 DAYS
  7. PYRIDOSTIGMINE [Suspect]
     Active Substance: PYRIDOSTIGMINE
     Indication: Myasthenia gravis
     Dosage: 3 X 120MG/24H

REACTIONS (2)
  - Exposure during pregnancy [Unknown]
  - Myasthenia gravis [Recovered/Resolved]
